FAERS Safety Report 4773837-7 (Version None)
Quarter: 2005Q3

REPORT INFORMATION
  Report Type: 
  Country: None (occurrence: None)
  Receive Date: 20050920
  Receipt Date: 20050913
  Transmission Date: 20060218
  Serious: Yes (Other)
  Sender: FDA-Public Use
  Company Number: DE-GLAXOSMITHKLINE-D0047515A

PATIENT
  Sex: Male

DRUGS (1)
  1. IMIGRAN [Suspect]
     Indication: MIGRAINE
     Dosage: 1TAB PER DAY
     Route: 048

REACTIONS (4)
  - CYANOSIS [None]
  - DRUG ABUSER [None]
  - HEADACHE [None]
  - PERIPHERAL OCCLUSIVE DISEASE [None]
